FAERS Safety Report 8828114 (Version 4)
Quarter: 2012Q4

REPORT INFORMATION
  Report Type: 
  Country: IE (occurrence: IE)
  Receive Date: 20121005
  Receipt Date: 20121127
  Transmission Date: 20130627
  Serious: Yes (Life-Threatening, Hospitalization)
  Sender: FDA-Public Use
  Company Number: IE-COVIDIEN/TYCO HEALTHCARE/MALLINCKRODT-T201203555

PATIENT
  Age: 66 Year
  Sex: Male
  Weight: 70 kg

DRUGS (2)
  1. OPTIRAY 300 [Suspect]
     Indication: COMPUTERISED TOMOGRAM
     Dosage: 70 ml, single/ 100 ml PFS
     Route: 042
     Dates: start: 20121001, end: 20121001
  2. EYE DROPS [Concomitant]

REACTIONS (5)
  - Respiratory arrest [Recovered/Resolved]
  - Respiratory distress [Recovered/Resolved]
  - Aphonia [Recovered/Resolved]
  - Retching [Recovered/Resolved]
  - Eye movement disorder [Recovered/Resolved]
